FAERS Safety Report 25906544 (Version 1)
Quarter: 2025Q4

REPORT INFORMATION
  Report Type: Spontaneous
  Country: US (occurrence: None)
  Receive Date: 20251010
  Receipt Date: 20251010
  Transmission Date: 20260118
  Serious: No
  Sender: INCYTE
  Company Number: US-INCYTE CORPORATION-2025IN010783

PATIENT
  Age: 31 Year

DRUGS (2)
  1. JAKAFI [Suspect]
     Active Substance: RUXOLITINIB
     Indication: Chronic graft versus host disease
     Dosage: UNK
  2. REZUROCK [Concomitant]
     Active Substance: BELUMOSUDIL
     Indication: Product used for unknown indication
     Dosage: UNK
     Route: 065

REACTIONS (7)
  - Respiratory syncytial virus infection [Unknown]
  - Tendon disorder [Unknown]
  - Muscle spasms [Unknown]
  - Alopecia [Unknown]
  - Hormone level abnormal [Unknown]
  - Muscle atrophy [Unknown]
  - Asthenia [Unknown]
